FAERS Safety Report 7804533-7 (Version None)
Quarter: 2011Q4

REPORT INFORMATION
  Report Type: 
  Country: None (occurrence: None)
  Receive Date: 20111010
  Receipt Date: 20111003
  Transmission Date: 20120403
  Serious: Yes (Other)
  Sender: FDA-Public Use
  Company Number: US-AMGEN-USASP2011047572

PATIENT
  Age: 67 Year
  Sex: Female

DRUGS (6)
  1. SYNTHROID [Concomitant]
     Dosage: UNK
  2. METHOTREXATE [Concomitant]
     Dosage: 17.5 UNK, QWK
     Dates: start: 20071114
  3. FOLIC ACID [Concomitant]
     Dosage: UNK
     Dates: start: 20110101, end: 20110101
  4. VITAMINS                           /00067501/ [Concomitant]
     Dosage: UNK
  5. LIPITOR [Concomitant]
     Dosage: UNK
  6. ENBREL [Suspect]
     Indication: RHEUMATOID ARTHRITIS
     Dosage: 50 MG, QWK
     Dates: start: 20090521, end: 20110913

REACTIONS (4)
  - ACOUSTIC NEUROMA [None]
  - BASAL CELL CARCINOMA [None]
  - INJECTION SITE HAEMATOMA [None]
  - INCREASED TENDENCY TO BRUISE [None]
